FAERS Safety Report 9961564 (Version 1)
Quarter: 2014Q1

REPORT INFORMATION
  Report Type: Report from Study
  Country: ES (occurrence: ES)
  Receive Date: 20140305
  Receipt Date: 20140305
  Transmission Date: 20141002
  Serious: Yes (Other)
  Sender: FDA-Public Use
  Company Number: ES-VERTEX PHARMACEUTICALS INC-2014-001099

PATIENT
  Sex: 0

DRUGS (4)
  1. TELAPREVIR [Suspect]
     Indication: CHRONIC HEPATITIS C
  2. PEGINTERFERON ALFA [Suspect]
     Indication: HEPATITIS C
     Dosage: UNK
     Route: 065
  3. RIBAVIRIN [Suspect]
     Indication: HEPATITIS C
     Dosage: UNK
     Route: 065
  4. ERYTHROPOIETIN [Suspect]
     Indication: ANAEMIA
     Dosage: UNK
     Route: 065

REACTIONS (4)
  - Neutrophil count decreased [Unknown]
  - White blood cell count decreased [Unknown]
  - Anaemia [Unknown]
  - Platelet count decreased [Unknown]
